FAERS Safety Report 5391131-0 (Version None)
Quarter: 2007Q3

REPORT INFORMATION
  Report Type: 
  Country: None (occurrence: None)
  Receive Date: 20070719
  Receipt Date: 20070711
  Transmission Date: 20080115
  Serious: Yes (Other)
  Sender: FDA-Public Use
  Company Number: PHEH2007US09861

PATIENT
  Age: 2 Year

DRUGS (1)
  1. TRILEPTAL [Suspect]

REACTIONS (2)
  - CONVULSION [None]
  - DRUG DISPENSING ERROR [None]
